FAERS Safety Report 6812682-5 (Version None)
Quarter: 2010Q3

REPORT INFORMATION
  Report Type: 
  Country: None (occurrence: None)
  Receive Date: 20100701
  Receipt Date: 20100623
  Transmission Date: 20110219
  Serious: Yes (Other)
  Sender: FDA-Public Use
  Company Number: US-ROCHE-711598

PATIENT
  Sex: Female
  Weight: 52.2 kg

DRUGS (6)
  1. BONIVA [Suspect]
     Indication: OSTEOPOROSIS
     Route: 048
     Dates: start: 20100501, end: 20100601
  2. FOSAMAX [Suspect]
     Indication: OSTEOPOROSIS
     Route: 065
     Dates: start: 20020101, end: 20100301
  3. SINGULAIR [Concomitant]
  4. ACETAMINOPHEN [Concomitant]
  5. LYRICA [Concomitant]
  6. CALCIUM CARBONATE [Concomitant]

REACTIONS (2)
  - MUSCULOSKELETAL PAIN [None]
  - POST HERPETIC NEURALGIA [None]
